FAERS Safety Report 11926570 (Version 1)
Quarter: 2016Q1

REPORT INFORMATION
  Report Type: Spontaneous
  Country: US (occurrence: US)
  Receive Date: 20160119
  Receipt Date: 20160119
  Transmission Date: 20160526
  Serious: Yes (Other)
  Sender: FDA-Public Use
  Company Number: US-ACTAVIS-2016-00855

PATIENT
  Age: 70 Year
  Sex: Male

DRUGS (1)
  1. METOCLOPRAMIDE (WATSON LABORATORIES) [Suspect]
     Active Substance: METOCLOPRAMIDE HYDROCHLORIDE
     Indication: DYSPEPSIA
     Dosage: ^EATING THEM LIKE CANDIES^
     Route: 048

REACTIONS (2)
  - Tardive dyskinesia [Recovered/Resolved]
  - Intentional product misuse [Unknown]
